FAERS Safety Report 5386531-9 (Version None)
Quarter: 2007Q3

REPORT INFORMATION
  Report Type: 
  Country: None (occurrence: None)
  Receive Date: 20070710
  Receipt Date: 20070419
  Transmission Date: 20080115
  Serious: Yes (Hospitalization)
  Sender: FDA-Public Use
  Company Number: 8024972

PATIENT
  Age: 31 Year
  Sex: Female

DRUGS (4)
  1. LEVETIRACETAM [Suspect]
     Indication: CONVULSION
     Dates: start: 20040325
  2. VALPROATE SODIUM [Concomitant]
  3. PHENYTOIN [Concomitant]
  4. FOLIC ACID [Concomitant]

REACTIONS (4)
  - NEUROSIS [None]
  - PSYCHOTIC DISORDER [None]
  - SUICIDE ATTEMPT [None]
  - THERAPEUTIC AGENT TOXICITY [None]
